FAERS Safety Report 4668657-8 (Version None)
Quarter: 2005Q2

REPORT INFORMATION
  Report Type: 
  Country: None (occurrence: None)
  Receive Date: 20050523
  Receipt Date: 20040910
  Transmission Date: 20051028
  Serious: No
  Sender: FDA-Public Use
  Company Number: US-GLAXOSMITHKLINE-A0525441A

PATIENT
  Age: 43 Year

DRUGS (6)
  1. FLOLAN [Suspect]
     Route: 042
     Dates: start: 20031201
  2. VIAGRA [Concomitant]
  3. LASIX [Concomitant]
  4. DIGOXIN [Concomitant]
  5. POTASSIUM CHLORIDE [Concomitant]
  6. OXYGEN THERAPY [Concomitant]

REACTIONS (1)
  - MYALGIA [None]
